FAERS Safety Report 8024321-9 (Version None)
Quarter: 2012Q1

REPORT INFORMATION
  Report Type: 
  Country: None (occurrence: None)
  Receive Date: 20120105
  Receipt Date: 20111223
  Transmission Date: 20120608
  Serious: Yes (Other)
  Sender: FDA-Public Use
  Company Number: US-ELI_LILLY_AND_COMPANY-US201103002517

PATIENT
  Sex: Female

DRUGS (10)
  1. FORTEO [Suspect]
     Dosage: 20 UG, QD
     Route: 065
  2. FORTEO [Suspect]
     Dosage: 20 UG, QD
     Route: 065
  3. FORTEO [Suspect]
     Dosage: 20 UG, QD
     Route: 065
  4. FORTEO [Suspect]
     Indication: OSTEOPOROSIS
     Dosage: 20 UG, QD
     Route: 065
     Dates: start: 20110221
  5. FORTEO [Suspect]
     Dosage: 20 UG, QD
     Route: 065
  6. FORTEO [Suspect]
     Dosage: 20 UG, QD
     Route: 065
  7. FORTEO [Suspect]
     Dosage: 20 UG, QD
     Route: 065
  8. FORTEO [Suspect]
     Dosage: 20 UG, QD
     Route: 065
  9. LIPITOR [Concomitant]
     Dosage: 10 MG, UNK
  10. FORTEO [Suspect]
     Dosage: 20 UG, QD
     Route: 065

REACTIONS (19)
  - SKIN DISORDER [None]
  - CONTUSION [None]
  - DRUG DOSE OMISSION [None]
  - MAMMOGRAM ABNORMAL [None]
  - SWELLING [None]
  - INJECTION SITE DISCOLOURATION [None]
  - FEAR [None]
  - INJECTION SITE PAIN [None]
  - MUSCLE SPASMS [None]
  - TREMOR [None]
  - POOR QUALITY DRUG ADMINISTERED [None]
  - INJECTION SITE ERYTHEMA [None]
  - HEADACHE [None]
  - PAIN IN EXTREMITY [None]
  - GAIT DISTURBANCE [None]
  - FATIGUE [None]
  - MALAISE [None]
  - INJECTION SITE HAEMORRHAGE [None]
  - INJECTION SITE HAEMATOMA [None]
